FAERS Safety Report 4363276-5 (Version None)
Quarter: 2004Q2

REPORT INFORMATION
  Report Type: 
  Country: None (occurrence: None)
  Receive Date: 20040517
  Receipt Date: 20040120
  Transmission Date: 20050107
  Serious: No
  Sender: FDA-Public Use
  Company Number: S04-USA-00294-01

PATIENT
  Age: 80 Year
  Sex: Male

DRUGS (5)
  1. NAMENDA [Suspect]
     Indication: DEMENTIA ALZHEIMER'S TYPE
     Dosage: 5 MG QD PO
     Route: 048
     Dates: start: 20040112, end: 20040118
  2. NAMENDA [Suspect]
     Indication: DEMENTIA ALZHEIMER'S TYPE
     Dosage: 10 MG QD PO
     Route: 048
     Dates: start: 20040119
  3. ARICEPT [Concomitant]
  4. SEROQUEL (QUETIAPINE HYDROCHLORIDE) [Concomitant]
  5. ZOLOFT [Concomitant]

REACTIONS (1)
  - DIFFICULTY IN WALKING [None]
